FAERS Safety Report 16936808 (Version 3)
Quarter: 2022Q3

REPORT INFORMATION
  Report Type: Spontaneous
  Country: US (occurrence: US)
  Receive Date: 20191018
  Receipt Date: 20220817
  Transmission Date: 20221027
  Serious: Yes (Other)
  Sender: FDA-Public Use
  Company Number: US-BIOCODEX2-201901292

PATIENT

DRUGS (4)
  1. DIACOMIT [Suspect]
     Active Substance: STIRIPENTOL
     Indication: Epilepsy
     Dosage: 500MG TWICE DAILY
     Route: 065
     Dates: start: 20190717
  2. DIACOMIT [Suspect]
     Active Substance: STIRIPENTOL
     Dosage: TAKE 500MG BY G-TUBE TWICE DAILY. MIX WITH 60ML WATER AND FLUSH WITH 60ML WATER
     Route: 050
  3. CLOBAZAM [Suspect]
     Active Substance: CLOBAZAM
     Indication: Product used for unknown indication
     Dosage: UNK
  4. EPIDIOLEX [Concomitant]
     Active Substance: CANNABIDIOL
     Indication: Product used for unknown indication
     Dosage: UNK

REACTIONS (3)
  - Seizure [Unknown]
  - Product use in unapproved indication [Unknown]
  - Product preparation issue [Unknown]

NARRATIVE: CASE EVENT DATE: 20191008
